FAERS Safety Report 25703744 (Version 1)
Quarter: 2025Q3

REPORT INFORMATION
  Report Type: Spontaneous
  Country: US (occurrence: US)
  Receive Date: 20250820
  Receipt Date: 20250820
  Transmission Date: 20251021
  Serious: Yes (Death, Hospitalization)
  Sender: MERCK SHARP & DOHME LLC
  Company Number: US-009507513-2319639

PATIENT
  Age: 60 Year
  Sex: Female

DRUGS (3)
  1. BRIDION [Suspect]
     Active Substance: SUGAMMADEX SODIUM
     Indication: Neuromuscular blockade reversal
     Route: 050
     Dates: start: 20250716
  2. ROCURONIUM [Suspect]
     Active Substance: ROCURONIUM BROMIDE
     Indication: Neuromuscular blocking therapy
     Dates: start: 20250716
  3. VECURONIUM [Suspect]
     Active Substance: VECURONIUM BROMIDE
     Indication: Neuromuscular blocking therapy
     Dates: start: 20250716

REACTIONS (4)
  - Deep vein thrombosis [Fatal]
  - Bradycardia [Recovering/Resolving]
  - Hypotension [Recovering/Resolving]
  - Pulmonary embolism [Fatal]

NARRATIVE: CASE EVENT DATE: 20250701
